FAERS Safety Report 20659336 (Version 2)
Quarter: 2022Q2

REPORT INFORMATION
  Report Type: Spontaneous
  Country: US (occurrence: US)
  Receive Date: 20220331
  Receipt Date: 20220404
  Transmission Date: 20220721
  Serious: No
  Sender: FDA-Public Use
  Company Number: US-PFIZER INC-2021769390

PATIENT
  Age: 55 Year
  Sex: Female

DRUGS (5)
  1. IBRANCE [Suspect]
     Active Substance: PALBOCICLIB
     Dosage: 125 MG
     Dates: start: 20210506
  2. IBRANCE [Suspect]
     Active Substance: PALBOCICLIB
     Dosage: 125 MG
     Route: 048
     Dates: start: 20210618
  3. IBRANCE [Suspect]
     Active Substance: PALBOCICLIB
     Dosage: 125 MG
     Dates: start: 20210619
  4. IBRANCE [Suspect]
     Active Substance: PALBOCICLIB
     Dosage: 125 MG
     Dates: start: 20210701
  5. IBRANCE [Suspect]
     Active Substance: PALBOCICLIB
     Dosage: 125 MG
     Dates: start: 20210704

REACTIONS (8)
  - Stomatitis [Recovered/Resolved]
  - Pain [Unknown]
  - Rash pruritic [Recovered/Resolved]
  - Papule [Unknown]
  - Blister [Recovered/Resolved]
  - Urticaria [Unknown]
  - Rash erythematous [Unknown]
  - Tumour marker increased [Unknown]

NARRATIVE: CASE EVENT DATE: 20210619
